FAERS Safety Report 8203735-8 (Version None)
Quarter: 2012Q1

REPORT INFORMATION
  Report Type: 
  Country: None (occurrence: None)
  Receive Date: 20120308
  Receipt Date: 20120228
  Transmission Date: 20120608
  Serious: Yes (Other)
  Sender: FDA-Public Use
  Company Number: 2012SP011542

PATIENT
  Sex: Male

DRUGS (3)
  1. DEPAKOTE [Concomitant]
  2. SAPHRIS [Suspect]
  3. SAPHRIS [Suspect]
     Route: 060

REACTIONS (1)
  - AGRANULOCYTOSIS [None]
